FAERS Safety Report 4785289-1 (Version None)
Quarter: 2005Q3

REPORT INFORMATION
  Report Type: 
  Country: None (occurrence: None)
  Receive Date: 20050929
  Receipt Date: 20050921
  Transmission Date: 20060218
  Serious: Yes (Other)
  Sender: FDA-Public Use
  Company Number: GB-2005-018214

PATIENT
  Age: 51 Year
  Sex: Male

DRUGS (1)
  1. ULTRAVIST 300 [Suspect]
     Indication: CORONARY ANGIOPLASTY
     Dosage: 250 ML, 1 DOSE, INTRACORONARY
     Route: 022
     Dates: start: 20050805, end: 20050805

REACTIONS (5)
  - BLOOD PRESSURE DECREASED [None]
  - COUGH [None]
  - OXYGEN SATURATION DECREASED [None]
  - PULMONARY OEDEMA [None]
  - URTICARIA [None]
